FAERS Safety Report 4712159-7 (Version None)
Quarter: 2005Q3

REPORT INFORMATION
  Report Type: 
  Country: None (occurrence: None)
  Receive Date: 20050712
  Receipt Date: 20050610
  Transmission Date: 20060218
  Serious: Yes (Other)
  Sender: FDA-Public Use
  Company Number: JP-ROCHE-407608

PATIENT
  Age: 80 Year
  Sex: Female

DRUGS (4)
  1. XELODA [Suspect]
     Indication: BREAST CANCER METASTATIC
     Route: 048
     Dates: start: 20050530, end: 20050608
  2. AREDIA [Suspect]
     Indication: CANCER PAIN
     Route: 042
     Dates: start: 20050603, end: 20050603
  3. OXYCONTIN [Suspect]
     Indication: CANCER PAIN
     Route: 048
     Dates: start: 20050603, end: 20050607
  4. AROMASIN [Concomitant]
     Route: 048
     Dates: start: 20041224, end: 20050608

REACTIONS (4)
  - ERYTHEMA [None]
  - PYREXIA [None]
  - RASH [None]
  - SKIN EXFOLIATION [None]
